FAERS Safety Report 11421797 (Version 1)
Quarter: 2015Q3

REPORT INFORMATION
  Report Type: Report from Study
  Country: CA (occurrence: CA)
  Receive Date: 20150827
  Receipt Date: 20150827
  Transmission Date: 20151125
  Serious: Yes (Other)
  Sender: FDA-Public Use
  Company Number: CA-ROCHE-1290591

PATIENT
  Sex: Female
  Weight: 61.2 kg

DRUGS (9)
  1. FOLIC ACID. [Concomitant]
     Active Substance: FOLIC ACID
  2. ACETAMINOPHEN. [Concomitant]
     Active Substance: ACETAMINOPHEN
     Indication: PREMEDICATION
     Route: 048
     Dates: start: 20130529
  3. RITUXAN [Suspect]
     Active Substance: RITUXIMAB
     Indication: RHEUMATOID ARTHRITIS
     Dosage: LAST DOSE PRIOR TO SAE: 12/JUN/2013
     Route: 042
     Dates: start: 20130529
  4. LAMOTRIGINE. [Concomitant]
     Active Substance: LAMOTRIGINE
  5. METHOTREXATE [Concomitant]
     Active Substance: METHOTREXATE
  6. RABEPRAZOLE [Concomitant]
     Active Substance: RABEPRAZOLE
  7. METHYLPREDNISOLONE. [Concomitant]
     Active Substance: METHYLPREDNISOLONE
     Indication: PREMEDICATION
     Route: 042
     Dates: start: 20130529
  8. DIPHENHYDRAMINE HCL [Concomitant]
     Active Substance: DIPHENHYDRAMINE HYDROCHLORIDE
     Indication: PREMEDICATION
     Route: 048
     Dates: start: 20130529
  9. QUETIAPINE [Concomitant]
     Active Substance: QUETIAPINE

REACTIONS (4)
  - Ventricular septal defect [Unknown]
  - White blood cell count decreased [Unknown]
  - Gastrooesophageal reflux disease [Unknown]
  - Pain [Recovered/Resolved]
